FAERS Safety Report 8575346-6 (Version None)
Quarter: 2012Q2

REPORT INFORMATION
  Report Type: 
  Country: None (occurrence: None)
  Receive Date: 20120423
  Receipt Date: 20090729
  Transmission Date: 20120825
  Serious: Yes (Disabling)
  Sender: FDA-Public Use
  Company Number: PHEH2009US07483

PATIENT
  Sex: Female

DRUGS (7)
  1. EXJADE [Suspect]
     Indication: SICKLE CELL ANAEMIA
     Dosage: 1000 MG, QD, ORAL 750 MG, QD
     Route: 048
     Dates: start: 20070107, end: 20080923
  2. EXJADE [Suspect]
     Indication: IRON OVERLOAD
     Dosage: 1000 MG, QD, ORAL 750 MG, QD
     Route: 048
     Dates: start: 20070107, end: 20080923
  3. EXJADE [Suspect]
     Indication: SICKLE CELL ANAEMIA
     Dosage: 1000 MG, QD, ORAL 750 MG, QD
     Route: 048
     Dates: start: 20080923, end: 20081201
  4. EXJADE [Suspect]
     Indication: IRON OVERLOAD
     Dosage: 1000 MG, QD, ORAL 750 MG, QD
     Route: 048
     Dates: start: 20080923, end: 20081201
  5. TOPROL-XL [Concomitant]
  6. FOLIC ACID [Concomitant]
  7. ALLOPURINOL [Concomitant]

REACTIONS (3)
  - BLOOD CREATININE INCREASED [None]
  - PROTEINURIA [None]
  - RENAL DISORDER [None]
